FAERS Safety Report 9129744 (Version 1)
Quarter: 2013Q1

REPORT INFORMATION
  Report Type: Spontaneous
  Country: DE (occurrence: DE)
  Receive Date: 20130125
  Receipt Date: 20130125
  Transmission Date: 20140127
  Serious: Yes (Other)
  Sender: FDA-Public Use
  Company Number: DE-TEVA-380364GER

PATIENT
  Age: 59 Year
  Sex: Female

DRUGS (1)
  1. CICLOSPORIN [Suspect]
     Indication: DERMATITIS
     Dosage: 300 MILLIGRAM DAILY;
     Route: 048
     Dates: start: 20120530, end: 20120705

REACTIONS (1)
  - Recurrent cancer [Not Recovered/Not Resolved]
